FAERS Safety Report 10014794 (Version 1)
Quarter: 2014Q1

REPORT INFORMATION
  Report Type: Spontaneous
  Country: US (occurrence: US)
  Receive Date: 20140317
  Receipt Date: 20140317
  Transmission Date: 20141002
  Serious: No
  Sender: FDA-Public Use
  Company Number: US-SHIRE-US201400487

PATIENT
  Sex: 0

DRUGS (4)
  1. LIALDA [Suspect]
     Indication: COLITIS ULCERATIVE
     Dosage: 4.8 G ( FOUR 1.2 G TABLETS), 1X/DAY:QD (IN MORNING)
     Route: 048
     Dates: start: 201403
  2. IRON [Concomitant]
     Indication: ANAEMIA
     Dosage: UNK, UNKNOWN
     Route: 048
     Dates: start: 201402
  3. FORVIA [Concomitant]
     Indication: VITAMIN SUPPLEMENTATION
     Dosage: 1 DF, 1X/DAY:QD
     Route: 048
     Dates: start: 201402
  4. ALL OTHER THERAPEUTIC PRODUCTS [Concomitant]
     Indication: VITAMIN SUPPLEMENTATION
     Dosage: UNK, UNKNOWN
     Route: 048
     Dates: start: 201402

REACTIONS (2)
  - Chest pain [Not Recovered/Not Resolved]
  - Epistaxis [Not Recovered/Not Resolved]
